FAERS Safety Report 12238764 (Version 1)
Quarter: 2016Q2

REPORT INFORMATION
  Report Type: Spontaneous
  Country: US (occurrence: US)
  Receive Date: 20160405
  Receipt Date: 20160405
  Transmission Date: 20160815
  Serious: No
  Sender: FDA-Public Use
  Company Number: US-BAUSCH-BL-2015-027582

PATIENT
  Age: 69 Year
  Sex: Male

DRUGS (4)
  1. POLYMYXIN B SULFATE AND TRIMETHOPRIM [Suspect]
     Active Substance: POLYMYXIN B SULFATE\TRIMETHOPRIM SULFATE
     Indication: PROPHYLAXIS
     Route: 061
     Dates: start: 201505
  2. COSOPT [Concomitant]
     Active Substance: DORZOLAMIDE HYDROCHLORIDE\TIMOLOL MALEATE
     Indication: GLAUCOMA
     Dosage: LEFT EYE
     Route: 061
  3. LOTEMAX [Concomitant]
     Active Substance: LOTEPREDNOL ETABONATE
     Indication: PRODUCT USED FOR UNKNOWN INDICATION
     Dosage: LEFT EYE
     Route: 061
  4. TRAVATAN [Concomitant]
     Active Substance: TRAVOPROST
     Indication: GLAUCOMA
     Dosage: LEFT EYE
     Route: 061

REACTIONS (1)
  - Eye infection fungal [Not Recovered/Not Resolved]

NARRATIVE: CASE EVENT DATE: 20151112
